FAERS Safety Report 6723742-1 (Version None)
Quarter: 2010Q2

REPORT INFORMATION
  Report Type: 
  Country: None (occurrence: None)
  Receive Date: 20100513
  Receipt Date: 20100505
  Transmission Date: 20101027
  Serious: Yes (Other)
  Sender: FDA-Public Use
  Company Number: GB-JNJFOC-20070904046

PATIENT
  Age: 21 Year
  Sex: Female

DRUGS (4)
  1. IBUPROFEN [Suspect]
     Indication: ARTHROPATHY
     Dosage: DOSE AND FREQUENCY UNKNOWN
  2. AZITHROMYCIN [Interacting]
     Indication: ANTIINFLAMMATORY THERAPY
  3. COLOMYCIN [Interacting]
     Indication: PSEUDOMONAS INFECTION
     Dosage: 2DF
     Route: 042
  4. TOBRAMYCIN [Interacting]
     Indication: PSEUDOMONAS INFECTION
     Route: 042

REACTIONS (6)
  - DRUG INTERACTION [None]
  - DYSPEPSIA [None]
  - HYPOPHAGIA [None]
  - RENAL FAILURE ACUTE [None]
  - VOMITING [None]
  - WEIGHT DECREASED [None]
